FAERS Safety Report 8344563 (Version 7)
Quarter: 2013Q4

REPORT INFORMATION
  Report Type: Spontaneous
  Country: US (occurrence: US)
  Receive Date: 20120119
  Receipt Date: 20131227
  Transmission Date: 20140711
  Serious: Yes (Other)
  Sender: FDA-Public Use
  Company Number: US-ASTRAZENECA-2012SE02297

PATIENT
  Age: 61 Year
  Sex: Female
  Weight: 65.8 kg

DRUGS (33)
  1. NEXIUM [Suspect]
     Indication: GASTROOESOPHAGEAL REFLUX DISEASE
     Route: 048
  2. NEXIUM [Suspect]
     Indication: HIATUS HERNIA
     Route: 048
  3. NEXIUM [Suspect]
     Indication: GASTROOESOPHAGEAL REFLUX DISEASE
     Dosage: DAILY
     Route: 048
     Dates: end: 201306
  4. NEXIUM [Suspect]
     Indication: HIATUS HERNIA
     Dosage: DAILY
     Route: 048
     Dates: end: 201306
  5. NEXIUM [Suspect]
     Indication: GASTROOESOPHAGEAL REFLUX DISEASE
     Route: 048
  6. NEXIUM [Suspect]
     Indication: HIATUS HERNIA
     Route: 048
  7. LISINOPRIL [Suspect]
     Indication: HYPERTENSION
     Route: 048
     Dates: start: 2003
  8. SEROQUEL XR [Suspect]
     Indication: PANIC ATTACK
     Route: 048
  9. SEROQUEL XR [Suspect]
     Indication: STRESS
     Route: 048
  10. SEROQUEL XR [Suspect]
     Indication: SLEEP DISORDER
     Route: 048
  11. SEROQUEL XR [Suspect]
     Indication: DEPRESSION
     Route: 048
  12. SEROQUEL XR [Suspect]
     Indication: PANIC ATTACK
     Route: 048
     Dates: end: 201207
  13. SEROQUEL XR [Suspect]
     Indication: STRESS
     Route: 048
     Dates: end: 201207
  14. SEROQUEL XR [Suspect]
     Indication: SLEEP DISORDER
     Route: 048
     Dates: end: 201207
  15. SEROQUEL XR [Suspect]
     Indication: DEPRESSION
     Route: 048
     Dates: end: 201207
  16. PRILOSEC OTC [Suspect]
     Route: 048
  17. ATENOLOL [Suspect]
     Indication: HYPERTENSION
     Route: 048
     Dates: end: 2003
  18. ATENOLOL [Suspect]
     Indication: HYPERTENSION
     Route: 048
  19. NYSTATIN [Concomitant]
  20. LOSARTAN [Concomitant]
  21. LEVOCETRIZINE [Concomitant]
     Route: 048
  22. SERTRALINE HCL [Concomitant]
  23. CLONAZEPAM [Concomitant]
     Indication: NERVOUSNESS
  24. CLONAZEPAM [Concomitant]
     Indication: NERVOUSNESS
  25. CLONAZEPAM [Concomitant]
     Indication: NERVOUSNESS
     Route: 048
  26. BABY ASPIRIN [Concomitant]
  27. AMITRIPTYLINE HCL [Concomitant]
     Indication: FIBROMYALGIA
     Route: 048
  28. AMITRIPTYLINE HCL [Concomitant]
     Indication: FIBROMYALGIA
     Route: 048
  29. HYDROCHLOROTHIAZIDE [Concomitant]
     Indication: DIURETIC THERAPY
  30. MICARDIS [Concomitant]
     Indication: HYPERTENSION
     Route: 048
  31. MICARDIS [Concomitant]
     Indication: HYPERTENSION
     Dosage: DAILY
     Route: 048
     Dates: start: 2007
  32. DIVALPROEX SODIUM [Concomitant]
  33. TUMS [Concomitant]
     Indication: DYSPEPSIA
     Route: 048
     Dates: start: 201306

REACTIONS (39)
  - Hand fracture [Unknown]
  - Wrist fracture [Unknown]
  - Road traffic accident [Unknown]
  - Head injury [Unknown]
  - Loss of consciousness [Unknown]
  - Tooth fracture [Unknown]
  - Anxiety [Unknown]
  - Urinary tract infection [Unknown]
  - Respiratory tract congestion [Unknown]
  - Intertrigo [Unknown]
  - Back pain [Not Recovered/Not Resolved]
  - Allergic sinusitis [Unknown]
  - Fall [Unknown]
  - Throat irritation [Unknown]
  - Blood pressure decreased [Unknown]
  - Dysphagia [Unknown]
  - Depression [Unknown]
  - Myalgia [Unknown]
  - Headache [Unknown]
  - Rash [Unknown]
  - Aphagia [Unknown]
  - Gastrooesophageal reflux disease [Unknown]
  - Pain [Unknown]
  - Dizziness [Unknown]
  - Vomiting [Unknown]
  - Feeling abnormal [Unknown]
  - Arthritis [Unknown]
  - Weight decreased [Unknown]
  - Insomnia [Unknown]
  - Panic attack [Unknown]
  - Hyperventilation [Unknown]
  - Visual impairment [Unknown]
  - Dyspepsia [Not Recovered/Not Resolved]
  - Fibromyalgia [Not Recovered/Not Resolved]
  - Nervous system disorder [Not Recovered/Not Resolved]
  - Weight decreased [Unknown]
  - Drug dose omission [Not Recovered/Not Resolved]
  - Drug ineffective [Unknown]
  - Intentional drug misuse [Unknown]
